FAERS Safety Report 11756804 (Version 1)
Quarter: 2015Q4

REPORT INFORMATION
  Report Type: Spontaneous
  Country: JP (occurrence: JP)
  Receive Date: 20151120
  Receipt Date: 20151120
  Transmission Date: 20160304
  Serious: Yes (Other)
  Sender: FDA-Public Use
  Company Number: JP-TAKEDA-2015TJP019451

PATIENT
  Age: 62 Year
  Sex: Male
  Weight: 62 kg

DRUGS (2)
  1. NESINA [Suspect]
     Active Substance: ALOGLIPTIN BENZOATE
     Indication: DIABETES MELLITUS
     Dosage: 25 MG, QD
     Route: 048
     Dates: start: 201509, end: 20151008
  2. GLIMEPIRIDE. [Concomitant]
     Active Substance: GLIMEPIRIDE
     Indication: DIABETES MELLITUS
     Dosage: 3 MG, QD
     Route: 048

REACTIONS (1)
  - Platelet count decreased [Not Recovered/Not Resolved]

NARRATIVE: CASE EVENT DATE: 201510
